FAERS Safety Report 11142824 (Version 1)
Quarter: 2015Q2

REPORT INFORMATION
  Report Type: Spontaneous
  Country: US (occurrence: US)
  Receive Date: 20150528
  Receipt Date: 20150528
  Transmission Date: 20150821
  Serious: Yes (Hospitalization)
  Sender: FDA-Public Use
  Company Number: US-CIPLA LTD.-2015US04004

PATIENT

DRUGS (3)
  1. AMLODIPINE [Interacting]
     Active Substance: AMLODIPINE BESYLATE
     Indication: HYPERTENSION
     Dosage: 10 MG, QD
  2. CEFTRIAXONE. [Suspect]
     Active Substance: CEFTRIAXONE
     Indication: URINARY TRACT INFECTION
     Route: 065
  3. SIMCARD 10 [Interacting]
     Active Substance: SIMVASTATIN
     Dosage: 80 MG, NIGHTLY

REACTIONS (7)
  - Rhabdomyolysis [Unknown]
  - Myopathy [Unknown]
  - Drug interaction [Unknown]
  - Chronic kidney disease [Unknown]
  - Muscle necrosis [Unknown]
  - Acute kidney injury [None]
  - Blood creatine phosphokinase increased [Recovering/Resolving]
